FAERS Safety Report 8444357-3 (Version None)
Quarter: 2012Q2

REPORT INFORMATION
  Report Type: 
  Country: None (occurrence: None)
  Receive Date: 20120613
  Receipt Date: 20120613
  Transmission Date: 20120825
  Serious: Yes (Hospitalization, Other)
  Sender: FDA-Public Use
  Company Number: None

PATIENT
  Sex: Male
  Weight: 96.843 kg

DRUGS (2)
  1. GAMMAGARD [Suspect]
  2. GAMMAGARD [Suspect]
     Indication: POLYMYOSITIS
     Dosage: 65 GM, QD X 3 D Q MONTH, IV
     Route: 042
     Dates: start: 20120605, end: 20120605

REACTIONS (8)
  - BLOOD PRESSURE INCREASED [None]
  - INFUSION RELATED REACTION [None]
  - MUSCULAR WEAKNESS [None]
  - BREATH SOUNDS ABNORMAL [None]
  - ABDOMINAL DISTENSION [None]
  - DYSPNOEA [None]
  - HEART RATE INCREASED [None]
  - OEDEMA PERIPHERAL [None]
